FAERS Safety Report 10149943 (Version 1)
Quarter: 2014Q2

REPORT INFORMATION
  Report Type: Spontaneous
  Country: US (occurrence: None)
  Receive Date: 20140501
  Receipt Date: 20140501
  Transmission Date: 20141212
  Serious: Yes (Death, Life-Threatening, Hospitalization, Disabling, Congenital Anomaly)
  Sender: FDA-Public Use
  Company Number: None

PATIENT
  Age: 41 Year
  Sex: Male
  Weight: 115.9 kg

DRUGS (6)
  1. LISINOPRIL [Suspect]
     Indication: SINUSITIS
     Route: 048
     Dates: start: 20140304, end: 20140306
  2. LISINOPRIL [Suspect]
     Indication: HYPERTENSION
     Route: 048
     Dates: start: 20140304, end: 20140306
  3. LISINOPRIL [Suspect]
     Indication: LABORATORY TEST
     Route: 048
     Dates: start: 20140304, end: 20140306
  4. HYDROXYZINE [Suspect]
     Indication: HYPERTENSION
     Route: 048
     Dates: start: 20140301, end: 20140306
  5. HYDROXYZINE [Suspect]
     Indication: SURGERY
     Route: 048
     Dates: start: 20140301, end: 20140306
  6. HYDROXYZINE [Suspect]
     Indication: LABORATORY TEST
     Route: 048
     Dates: start: 20140301, end: 20140306

REACTIONS (54)
  - Agitation [None]
  - Vision blurred [None]
  - Confusional state [None]
  - Depression [None]
  - Dizziness [None]
  - Hallucination [None]
  - Headache [None]
  - Haemorrhage intracranial [None]
  - Sedation [None]
  - Convulsion [None]
  - Parkinsonism [None]
  - Tardive dyskinesia [None]
  - Transient ischaemic attack [None]
  - Cerebrovascular accident [None]
  - Haemorrhage [None]
  - Thrombocytopenia [None]
  - Leukopenia [None]
  - Anaemia [None]
  - Myalgia [None]
  - Arthralgia [None]
  - Phlebitis [None]
  - Anaphylactic reaction [None]
  - Pyrexia [None]
  - Angioedema [None]
  - Rash [None]
  - Tachypnoea [None]
  - Respiratory depression [None]
  - Cough [None]
  - Wheezing [None]
  - Rash [None]
  - Erythema multiforme [None]
  - Urticaria [None]
  - Pruritus [None]
  - Purpura [None]
  - Skin exfoliation [None]
  - Constipation [None]
  - Diarrhoea [None]
  - Nausea [None]
  - Vomiting [None]
  - Gastric haemorrhage [None]
  - Palpitations [None]
  - Hypertension [None]
  - Hypotension [None]
  - Syncope [None]
  - Bradycardia [None]
  - Tachycardia [None]
  - International normalised ratio abnormal [None]
  - Hepatic enzyme increased [None]
  - Jaundice [None]
  - Nephritis [None]
  - Renal tubular necrosis [None]
  - Renal failure acute [None]
  - Hyperglycaemia [None]
  - Hypoglycaemia [None]
